FAERS Safety Report 9549162 (Version 1)
Quarter: 2013Q3

REPORT INFORMATION
  Report Type: Spontaneous
  Country: US (occurrence: US)
  Receive Date: 20130924
  Receipt Date: 20130924
  Transmission Date: 20140515
  Serious: No
  Sender: FDA-Public Use
  Company Number: US-BAYER-2013-115145

PATIENT
  Age: 25 Year
  Sex: Female

DRUGS (1)
  1. NATAZIA [Suspect]
     Indication: MENORRHAGIA
     Dosage: UNK
     Dates: start: 201308

REACTIONS (3)
  - Drug dose omission [None]
  - Menstrual disorder [None]
  - Breast tenderness [Unknown]
